FAERS Safety Report 5242279-2 (Version None)
Quarter: 2007Q1

REPORT INFORMATION
  Report Type: 
  Country: None (occurrence: None)
  Receive Date: 20070216
  Receipt Date: 20070216
  Transmission Date: 20070707
  Serious: Yes (Other)
  Sender: FDA-Public Use
  Company Number: None

PATIENT
  Sex: Male
  Weight: 81.1939 kg

DRUGS (2)
  1. TRASYLOL [Suspect]
     Indication: HAEMORRHAGE PROPHYLAXIS
     Dates: start: 20061214, end: 20061214
  2. TRASYLOL [Suspect]
     Indication: SURGERY
     Dates: start: 20061214, end: 20061214

REACTIONS (3)
  - DISSEMINATED INTRAVASCULAR COAGULATION [None]
  - RENAL FAILURE ACUTE [None]
  - THROMBOCYTOPENIA [None]
